FAERS Safety Report 9019737 (Version 1)
Quarter: 2013Q1

REPORT INFORMATION
  Report Type: Spontaneous
  Country: US (occurrence: US)
  Receive Date: 20130118
  Receipt Date: 20130118
  Transmission Date: 20140127
  Serious: Yes (Other)
  Sender: FDA-Public Use
  Company Number: US-ROCHE-1180596

PATIENT
  Age: 91 Year
  Sex: Male

DRUGS (2)
  1. BONIVA [Suspect]
     Indication: PRODUCT USED FOR UNKNOWN INDICATION
     Route: 065
  2. PREDNISONE [Concomitant]

REACTIONS (5)
  - Staphylococcal infection [Unknown]
  - Spinal fracture [Unknown]
  - Fall [Unknown]
  - Renal impairment [Unknown]
  - Progressive muscular atrophy [Unknown]
